FAERS Safety Report 6646842-3 (Version None)
Quarter: 2010Q1

REPORT INFORMATION
  Report Type: 
  Country: None (occurrence: None)
  Receive Date: 20100309
  Receipt Date: 20100108
  Transmission Date: 20100710
  Serious: No
  Sender: FDA-Public Use
  Company Number: 2010SP002146

PATIENT
  Sex: Female

DRUGS (24)
  1. SAPHRIS [Suspect]
     Indication: BIPOLAR DISORDER
     Dosage: 10 MG; BID; SL
     Dates: start: 20091022, end: 20091030
  2. INSULIN [Concomitant]
  3. BUMEX [Concomitant]
  4. COGENTIN [Concomitant]
  5. RISPERDAL [Concomitant]
  6. CALCIUM CHLORIDE [Concomitant]
  7. KEFLEX [Concomitant]
  8. DICYCLOMINE [Concomitant]
  9. DULOXETINE HYDROCHLORIDE [Concomitant]
  10. FEXOFENADINE [Concomitant]
  11. GABAPENTIN [Concomitant]
  12. METOPROLOL TARTRATE [Concomitant]
  13. POTASSIUM CHLORIDE [Concomitant]
  14. DICLOFENAC SODIUM [Concomitant]
  15. DOCUSATE [Concomitant]
  16. FLUTICASONE NASAL [Concomitant]
  17. GUAIFENESIN [Concomitant]
  18. LAMOTRIGINE [Concomitant]
  19. LEVOTHYROXINE SODIUM [Concomitant]
  20. QUETIAPINE [Concomitant]
  21. ROPINIROLE [Concomitant]
  22. SIMVASTATIN [Concomitant]
  23. Z-PRAZIDINE [Concomitant]
  24. DESVENLAFAXINE [Concomitant]

REACTIONS (1)
  - HYPOAESTHESIA ORAL [None]
